FAERS Safety Report 9753118 (Version 1)
Quarter: 2013Q4

REPORT INFORMATION
  Report Type: Spontaneous
  Country: US (occurrence: US)
  Receive Date: 20131213
  Receipt Date: 20131213
  Transmission Date: 20140711
  Serious: No
  Sender: FDA-Public Use
  Company Number: US-GILEAD-2010-0027255

PATIENT
  Sex: Female
  Weight: 72.57 kg

DRUGS (10)
  1. LETAIRIS [Suspect]
     Indication: PULMONARY ARTERIAL HYPERTENSION
     Route: 048
     Dates: start: 20100130
  2. REVATIO [Concomitant]
  3. AMIODARONE [Concomitant]
  4. DIGOXIN [Concomitant]
  5. LASIX [Concomitant]
  6. LEVETIRACETAM [Concomitant]
  7. FERROUS SULFATE [Concomitant]
  8. TOPIRAMATE [Concomitant]
  9. MIDODRINE [Concomitant]
  10. DOCQLACE [Concomitant]

REACTIONS (1)
  - Hearing impaired [Unknown]
